FAERS Safety Report 14454223 (Version 2)
Quarter: 2018Q1

REPORT INFORMATION
  Report Type: Report from Study
  Country: DE (occurrence: DE)
  Receive Date: 20180129
  Receipt Date: 20180226
  Transmission Date: 20180509
  Serious: Yes (Hospitalization, Other)
  Sender: FDA-Public Use
  Company Number: DE-TAKEDA-2017TUS019344

PATIENT
  Age: 45 Year
  Sex: Female

DRUGS (5)
  1. ELIQUIS [Concomitant]
     Active Substance: APIXABAN
     Indication: THROMBOSIS PROPHYLAXIS
     Dosage: UNK UNK, QD
     Route: 048
     Dates: start: 201705
  2. VEDOLIZUMAB [Suspect]
     Active Substance: VEDOLIZUMAB
     Indication: CROHN^S DISEASE
     Dosage: UNK
     Route: 042
     Dates: start: 20170807, end: 2017
  3. L-THYROXIN HENNING [Concomitant]
     Active Substance: LEVOTHYROXINE SODIUM
     Indication: THYROIDECTOMY
     Dosage: UNK
     Dates: start: 1993
  4. SALOFALK                           /00747601/ [Concomitant]
     Active Substance: MESALAMINE
     Indication: CROHN^S DISEASE
     Dosage: 2000 MG, UNK
     Dates: start: 201706
  5. L-THYROXIN 1A PHARMA [Concomitant]
     Indication: THYROIDECTOMY
     Dosage: UNK
     Dates: start: 20170830

REACTIONS (19)
  - Eyelid ptosis [Unknown]
  - Depressed mood [Not Recovered/Not Resolved]
  - Haemoglobin decreased [Unknown]
  - Subileus [Unknown]
  - Asthenia [Not Recovered/Not Resolved]
  - Weight decreased [Unknown]
  - Headache [Not Recovered/Not Resolved]
  - Bone pain [Not Recovered/Not Resolved]
  - Crying [Unknown]
  - Neck crushing [Not Recovered/Not Resolved]
  - Irritability [Unknown]
  - Abscess [Unknown]
  - Fistula [Unknown]
  - Eye swelling [Unknown]
  - Performance status decreased [Not Recovered/Not Resolved]
  - Fatigue [Not Recovered/Not Resolved]
  - Sepsis [Unknown]
  - Iron deficiency [Unknown]
  - Drug ineffective [Unknown]

NARRATIVE: CASE EVENT DATE: 20170904
